FAERS Safety Report 10748757 (Version 2)
Quarter: 2015Q2

REPORT INFORMATION
  Report Type: Report from Study
  Country: DE (occurrence: DE)
  Receive Date: 20150129
  Receipt Date: 20150413
  Transmission Date: 20150821
  Serious: Yes (Hospitalization)
  Sender: FDA-Public Use
  Company Number: DE-SA-2015SA007999

PATIENT
  Age: 50 Year
  Sex: Male
  Weight: 94 kg

DRUGS (6)
  1. LANTUS [Suspect]
     Active Substance: INSULIN GLARGINE
     Indication: TYPE 2 DIABETES MELLITUS
     Dosage: DOSE:16 UNIT(S)
     Route: 065
     Dates: start: 20140727
  2. LANTUS [Suspect]
     Active Substance: INSULIN GLARGINE
     Indication: TYPE 2 DIABETES MELLITUS
     Dosage: DOSE:10 UNIT(S)
     Route: 065
     Dates: start: 20131017
  3. METFORMIN [Concomitant]
     Active Substance: METFORMIN HYDROCHLORIDE
  4. LANTUS [Suspect]
     Active Substance: INSULIN GLARGINE
     Indication: TYPE 2 DIABETES MELLITUS
     Dosage: DOSE:18 UNIT(S)
     Route: 065
     Dates: start: 20140126
  5. LANTUS [Suspect]
     Active Substance: INSULIN GLARGINE
     Indication: TYPE 2 DIABETES MELLITUS
     Dosage: DOSE:18 UNIT(S)
     Route: 065
     Dates: start: 20140428
  6. LANTUS [Suspect]
     Active Substance: INSULIN GLARGINE
     Indication: TYPE 2 DIABETES MELLITUS
     Dosage: DOSE:22 UNIT(S)
     Route: 065
     Dates: start: 20141118

REACTIONS (2)
  - Gangrene [Recovered/Resolved]
  - Neuropathy peripheral [Unknown]

NARRATIVE: CASE EVENT DATE: 20140703
